FAERS Safety Report 5659750-1 (Version None)
Quarter: 2008Q1

REPORT INFORMATION
  Report Type: 
  Country: None (occurrence: None)
  Receive Date: 20080311
  Receipt Date: 20070712
  Transmission Date: 20080703
  Serious: No
  Sender: FDA-Public Use
  Company Number: US-BAYER-200712233BCC

PATIENT
  Age: 60 Year
  Sex: Female
  Weight: 73 kg

DRUGS (4)
  1. ALEVE [Suspect]
     Indication: BONE PAIN
     Dosage: UNIT DOSE: 220 MG
     Route: 048
     Dates: start: 20050101
  2. NAPROSYN [Concomitant]
  3. ADVAIR DISKUS 100/50 [Concomitant]
  4. NORVASC [Concomitant]

REACTIONS (2)
  - CONTUSION [None]
  - RASH MACULAR [None]
